FAERS Safety Report 15474395 (Version 1)
Quarter: 2018Q4

REPORT INFORMATION
  Report Type: Spontaneous
  Country: DE (occurrence: DE)
  Receive Date: 20181008
  Receipt Date: 20181008
  Transmission Date: 20190205
  Serious: Yes (Other)
  Sender: FDA-Public Use
  Company Number: DE-BAUSCH-BL-2018-027499

PATIENT
  Sex: Female

DRUGS (3)
  1. TIMO EDO 0.25% [Suspect]
     Active Substance: TIMOLOL MALEATE
     Dosage: AFTER OPERATION
     Route: 065
  2. TIMO EDO 0.25% [Suspect]
     Active Substance: TIMOLOL MALEATE
     Indication: INTRAOCULAR PRESSURE INCREASED
     Dosage: APPLYING FOR MANY YEARS?SINGLE-DOSE AMPULE
     Route: 065
  3. TAFLOTAN [Suspect]
     Active Substance: TAFLUPROST
     Indication: PRODUCT USED FOR UNKNOWN INDICATION
     Dosage: AT NIGHT
     Route: 065

REACTIONS (3)
  - Surgery [Unknown]
  - Contraindicated product administered [Unknown]
  - Contraindicated product prescribed [Unknown]
